FAERS Safety Report 7998278-0 (Version None)
Quarter: 2011Q4

REPORT INFORMATION
  Report Type: 
  Country: None (occurrence: None)
  Receive Date: 20111221
  Receipt Date: 20110610
  Transmission Date: 20120403
  Serious: No
  Sender: FDA-Public Use
  Company Number: US-GLAXOSMITHKLINE-A0931152A

PATIENT
  Age: 63 Year
  Sex: Female

DRUGS (11)
  1. ALTACE [Concomitant]
  2. TRICOR [Concomitant]
  3. SINGULAIR [Concomitant]
  4. PLAVIX [Concomitant]
  5. LOVAZA [Suspect]
     Indication: BLOOD TRIGLYCERIDES INCREASED
     Dosage: 2G SINGLE DOSE
     Route: 048
     Dates: start: 20110610
  6. PRAVACHOL [Concomitant]
  7. PRILOSEC [Concomitant]
  8. WELLBUTRIN [Concomitant]
  9. ZYRTEC [Concomitant]
  10. WELLBUTRIN [Suspect]
     Indication: DEPRESSION
     Dosage: 150MG THREE TIMES PER DAY
     Route: 048
  11. GLIMEPIRIDE [Concomitant]

REACTIONS (3)
  - HYPERHIDROSIS [None]
  - ERUCTATION [None]
  - THERAPEUTIC RESPONSE UNEXPECTED [None]
